FAERS Safety Report 14995279 (Version 1)
Quarter: 2018Q2

REPORT INFORMATION
  Report Type: Spontaneous
  Country: US (occurrence: US)
  Receive Date: 20180611
  Receipt Date: 20180611
  Transmission Date: 20180711
  Serious: Yes (Other)
  Sender: FDA-Public Use
  Company Number: US-BAYER-2018-104644

PATIENT
  Sex: Male

DRUGS (2)
  1. BAYER WOMENS [Suspect]
     Active Substance: ASPIRIN\CALCIUM CARBONATE
     Indication: CARDIAC DISORDER
     Dosage: 0.5 DF, QD
     Route: 065
  2. BAYER WOMENS [Suspect]
     Active Substance: ASPIRIN\CALCIUM CARBONATE
     Indication: HYPERTENSION

REACTIONS (5)
  - Off label use [Unknown]
  - Drug administration error [Unknown]
  - Haemorrhage [Unknown]
  - Product use in unapproved indication [Unknown]
  - Incorrect dose administered [Unknown]
